FAERS Safety Report 4787234-1 (Version None)
Quarter: 2005Q4

REPORT INFORMATION
  Report Type: 
  Country: None (occurrence: None)
  Receive Date: 20051004
  Receipt Date: 20050725
  Transmission Date: 20060501
  Serious: Yes (Other)
  Sender: FDA-Public Use
  Company Number: PHFR2005GB03268

PATIENT
  Age: 41 Year
  Sex: Male

DRUGS (2)
  1. CLOZAPINE [Suspect]
     Dosage: UNK, UNK
     Dates: start: 20050204, end: 20050520
  2. ZAPONEX [Suspect]
     Route: 048
     Dates: start: 20050521

REACTIONS (1)
  - CEREBROVASCULAR ACCIDENT [None]
